FAERS Safety Report 22637842 (Version 1)
Quarter: 2023Q2

REPORT INFORMATION
  Report Type: Report from Study
  Country: US (occurrence: US)
  Receive Date: 20230626
  Receipt Date: 20230626
  Transmission Date: 20230721
  Serious: Yes (Hospitalization)
  Sender: FDA-Public Use
  Company Number: US-ABBVIE-4773153

PATIENT
  Age: 74 Year
  Sex: Female
  Weight: 108.86 kg

DRUGS (2)
  1. HUMIRA [Suspect]
     Active Substance: ADALIMUMAB
     Indication: Psoriasis
     Dosage: FORM STRENGTH: 40 MILLIGRAM
     Route: 058
     Dates: start: 20221208
  2. HUMIRA [Suspect]
     Active Substance: ADALIMUMAB
     Indication: Psoriatic arthropathy

REACTIONS (13)
  - Fibrin D dimer increased [Unknown]
  - Dyspnoea [Recovered/Resolved]
  - Fibrin D dimer increased [Unknown]
  - Dyspnoea [Not Recovered/Not Resolved]
  - Pain in extremity [Not Recovered/Not Resolved]
  - Psoriasis [Unknown]
  - Cellulitis [Recovered/Resolved]
  - Inflammation [Not Recovered/Not Resolved]
  - Skin fissures [Recovered/Resolved]
  - Gait disturbance [Unknown]
  - Skin haemorrhage [Recovered/Resolved]
  - Fibrin D dimer decreased [Unknown]
  - Feeling hot [Unknown]

NARRATIVE: CASE EVENT DATE: 20230501
